FAERS Safety Report 5143304-X (Version None)
Quarter: 2006Q4

REPORT INFORMATION
  Report Type: 
  Country: None (occurrence: None)
  Receive Date: 20061030
  Receipt Date: 20061016
  Transmission Date: 20070319
  Serious: Yes (Death)
  Sender: FDA-Public Use
  Company Number: 2006EU002707

PATIENT
  Age: 40 Year
  Sex: Female

DRUGS (6)
  1. PROGRAF [Suspect]
     Indication: RENAL TRANSPLANT
     Dates: start: 20060714, end: 20060720
  2. CYMEVAN (GANCICLOVIR SODIUM) [Suspect]
     Dates: start: 20060717, end: 20060719
  3. WELLVONE (ALTOVAQUONE) [Suspect]
     Dates: start: 20060718, end: 20060724
  4. XIGRIS [Suspect]
     Dates: start: 20060717, end: 20060719
  5. BACTRIM [Concomitant]
  6. IMUREL [Concomitant]

REACTIONS (17)
  - BLOOD CHLORIDE DECREASED [None]
  - BLOOD FIBRINOGEN INCREASED [None]
  - BLOOD LACTATE DEHYDROGENASE INCREASED [None]
  - BLOOD PH INCREASED [None]
  - BRADYCARDIA [None]
  - BRAIN DEATH [None]
  - CARDIAC DISORDER [None]
  - HAEMOGLOBIN DECREASED [None]
  - HYPERKALAEMIA [None]
  - LABORATORY TEST ABNORMAL [None]
  - OXYGEN SATURATION DECREASED [None]
  - PCO2 INCREASED [None]
  - PNEUMOCYSTIS JIROVECI PNEUMONIA [None]
  - RHABDOMYOLYSIS [None]
  - TACHYCARDIA [None]
  - TACHYPNOEA [None]
  - THERAPY NON-RESPONDER [None]
